FAERS Safety Report 5876652 (Version 2)
Quarter: 2016Q1

REPORT INFORMATION
  Report Type: Spontaneous
  Country: DE (occurrence: DE)
  Receive Date: 20050913
  Receipt Date: 20160127
  Transmission Date: 20160526
  Serious: Yes (Hospitalization, Other)
  Sender: FDA-Public Use
  Company Number: DE-BRISTOL-MYERS SQUIBB COMPANY-12987459

PATIENT
  Sex: Female

DRUGS (1)
  1. ABILIFY [Suspect]
     Active Substance: ARIPIPRAZOLE
     Indication: SCHIZOPHRENIA
     Dosage: 15 MG, UNK
     Route: 065
     Dates: start: 200412

REACTIONS (5)
  - Laparotomy [Unknown]
  - Ectopic pregnancy [Unknown]
  - Abdominal pain [Unknown]
  - Uterine dilation and curettage [Unknown]
  - Vanishing twin syndrome [Unknown]
